FAERS Safety Report 9536099 (Version 1)
Quarter: 2013Q2

REPORT INFORMATION
  Report Type: Spontaneous
  Country: US (occurrence: None)
  Receive Date: 20130507
  Receipt Date: 20130507
  Transmission Date: 20140414
  Serious: No
  Sender: FDA-Public Use
  Company Number: PHEH2012US009215

PATIENT
  Age: 12 Year
  Sex: Female

DRUGS (1)
  1. AFINITOR (RAD) TABLET, 10MG [Suspect]
     Indication: TUBEROUS SCLEROSIS
     Route: 048
     Dates: start: 20120408

REACTIONS (4)
  - White blood cell count decreased [None]
  - Stomatitis [None]
  - Sinusitis [None]
  - Oral pain [None]
